FAERS Safety Report 7115402-2 (Version None)
Quarter: 2010Q4

REPORT INFORMATION
  Report Type: 
  Country: None (occurrence: None)
  Receive Date: 20101122
  Receipt Date: 20101115
  Transmission Date: 20110411
  Serious: Yes (Hospitalization)
  Sender: FDA-Public Use
  Company Number: US-B.I. PHARMACEUTICALS,INC./RIDGEFIELD-2010-DE-06298GD

PATIENT
  Age: 55 Year
  Sex: Male

DRUGS (2)
  1. MACROGOL [Suspect]
     Indication: BOWEL PREPARATION
     Dosage: LOW-VOLUME
  2. BISACODYL [Suspect]
     Indication: BOWEL PREPARATION
     Route: 048

REACTIONS (4)
  - ABDOMINAL PAIN [None]
  - NAUSEA [None]
  - SMALL INTESTINAL OBSTRUCTION [None]
  - VOMITING [None]
